FAERS Safety Report 9049610 (Version 1)
Quarter: 2013Q1

REPORT INFORMATION
  Report Type: Spontaneous
  Country: US (occurrence: US)
  Receive Date: 20130205
  Receipt Date: 20130205
  Transmission Date: 20140127
  Serious: Yes (Other)
  Sender: FDA-Public Use
  Company Number: CHPA2013US001858

PATIENT
  Age: 67 Year
  Sex: Male

DRUGS (1)
  1. EXCEDRIN EXTRA STRENGTH [Suspect]
     Indication: HEADACHE
     Dosage: 2 DF AS NEEDED
     Route: 048
     Dates: start: 1993

REACTIONS (2)
  - Urinary tract disorder [Recovered/Resolved]
  - Wrong technique in drug usage process [Unknown]
